FAERS Safety Report 7897339-4 (Version None)
Quarter: 2011Q4

REPORT INFORMATION
  Report Type: 
  Country: None (occurrence: None)
  Receive Date: 20111107
  Receipt Date: 20111024
  Transmission Date: 20120403
  Serious: Yes (Other)
  Sender: FDA-Public Use
  Company Number: BR-AMGEN-BRASP2011053705

PATIENT
  Age: 40 Year
  Sex: Female
  Weight: 58 kg

DRUGS (8)
  1. AMITRIPTYLINE HCL [Concomitant]
     Dosage: 25 MG, QD
     Dates: start: 20111013
  2. MIRTAZAPINE [Concomitant]
     Dosage: 15 MG, QD
     Dates: start: 20111013
  3. TRAMADOL HCL [Concomitant]
     Indication: MUSCULOSKELETAL PAIN
     Dosage: 5 MG, BID
     Dates: start: 20111005
  4. PANTOPRAZOLE [Concomitant]
     Indication: MUSCULOSKELETAL PAIN
     Dosage: 10 MG, BID
     Dates: start: 20111005
  5. ACETAMINOPHEN [Concomitant]
     Indication: MUSCULOSKELETAL PAIN
     Dosage: 400 MG, BID
     Dates: start: 20111005
  6. CARISOPRODOL [Concomitant]
     Indication: MUSCULOSKELETAL PAIN
     Dosage: 100 MG, BID
     Dates: start: 20111005
  7. CITALOPRAM [Concomitant]
     Indication: SOMNOLENCE
     Dosage: UNK UNK, QD
     Dates: start: 20111005
  8. ETANERCEPT [Suspect]
     Indication: RHEUMATOID ARTHRITIS
     Dosage: 50 MG, QWK
     Route: 058
     Dates: start: 20050101

REACTIONS (2)
  - RHEUMATOID ARTHRITIS [None]
  - WRONG TECHNIQUE IN DRUG USAGE PROCESS [None]
